FAERS Safety Report 17392839 (Version 1)
Quarter: 2020Q1

REPORT INFORMATION
  Report Type: Spontaneous
  Country: IE (occurrence: IE)
  Receive Date: 20200207
  Receipt Date: 20200207
  Transmission Date: 20200409
  Serious: Yes (Other)
  Sender: FDA-Public Use
  Company Number: IE-TEVA-2020-IE-1180931

PATIENT
  Age: 68 Year
  Sex: Female
  Weight: 67 kg

DRUGS (8)
  1. SPIRIVA RESPIMAT [Concomitant]
     Active Substance: TIOTROPIUM BROMIDE
     Indication: ASTHMA
     Dates: start: 20100101
  2. SERETIDE [Concomitant]
     Active Substance: FLUTICASONE PROPIONATE\SALMETEROL XINAFOATE
     Indication: ASTHMA
     Dosage: DAILY DOSE: 1000/100
     Dates: start: 20000101
  3. CINQAERO 10 MILLIGRAM(S)/MILLILITRE CONCENTRATE [Suspect]
     Active Substance: RESLIZUMAB
     Indication: ASTHMA
     Dosage: THERAPY IS ONGOING
     Route: 058
     Dates: start: 20171221
  4. DELTACORTRIL ENTERIC [Concomitant]
     Indication: ASTHMA
     Dates: start: 19900101
  5. UNIPHYLLIN CONTINUS [Concomitant]
     Active Substance: THEOPHYLLINE ANHYDROUS
     Indication: ASTHMA
     Dates: start: 19900101
  6. AVAMYS 27.5 MICROGRAMS/SPRAY, NASAL SPRAY SUSPENSION [Concomitant]
     Indication: RHINITIS ALLERGIC
     Dosage: 2 SPRAYS
     Dates: start: 20100101
  7. SINGULAIR [Concomitant]
     Active Substance: MONTELUKAST SODIUM
     Indication: ASTHMA
     Dates: start: 20100101
  8. ACTONEL 5 MG FILM COATED TABLETS [Concomitant]
     Indication: OSTEOPOROSIS
     Dates: start: 20181026

REACTIONS (1)
  - Dermal cyst [Recovered/Resolved]

NARRATIVE: CASE EVENT DATE: 20190101
